FAERS Safety Report 4441951-1 (Version None)
Quarter: 2004Q3

REPORT INFORMATION
  Report Type: 
  Country: None (occurrence: None)
  Receive Date: 20040907
  Receipt Date: 20040826
  Transmission Date: 20050211
  Serious: Yes (Death)
  Sender: FDA-Public Use
  Company Number: US-GLAXOSMITHKLINE-A0523522A

PATIENT
  Age: 37 Year
  Sex: Female

DRUGS (2)
  1. PAXIL [Suspect]
     Indication: POSTPARTUM DEPRESSION
     Route: 048
  2. DARVOCET [Concomitant]

REACTIONS (3)
  - COMPLETED SUICIDE [None]
  - INTENTIONAL OVERDOSE [None]
  - MURDER [None]
